FAERS Safety Report 21347175 (Version 1)
Quarter: 2022Q3

REPORT INFORMATION
  Report Type: Spontaneous
  Country: US (occurrence: US)
  Receive Date: 20220919
  Receipt Date: 20220919
  Transmission Date: 20221027
  Serious: No
  Sender: FDA-Public Use
  Company Number: US-JNJFOC-20220928409

PATIENT
  Sex: Male

DRUGS (3)
  1. RISPERDAL [Suspect]
     Active Substance: RISPERIDONE
     Indication: Behaviour disorder
     Route: 048
     Dates: end: 2013
  2. RISPERDAL [Suspect]
     Active Substance: RISPERIDONE
     Indication: Product used for unknown indication
     Route: 048
  3. ABILIFY [Suspect]
     Active Substance: ARIPIPRAZOLE
     Indication: Behaviour disorder
     Route: 065

REACTIONS (1)
  - Abnormal weight gain [Unknown]

NARRATIVE: CASE EVENT DATE: 20130101
